FAERS Safety Report 8084478-0 (Version None)
Quarter: 2012Q1

REPORT INFORMATION
  Report Type: 
  Country: None (occurrence: None)
  Receive Date: 20120128
  Receipt Date: 20110322
  Transmission Date: 20120608
  Serious: No
  Sender: FDA-Public Use
  Company Number: US-ABBOTT-11P-163-0714157-00

PATIENT
  Sex: Male
  Weight: 81.72 kg

DRUGS (2)
  1. HUMIRA [Suspect]
     Indication: CROHN'S DISEASE
     Dates: start: 20100623
  2. GLIPIZIDE [Suspect]
     Indication: DIABETES MELLITUS
     Dates: start: 20010101

REACTIONS (3)
  - NERVOUSNESS [None]
  - DIZZINESS [None]
  - BLOOD GLUCOSE DECREASED [None]
